FAERS Safety Report 7933751-2 (Version None)
Quarter: 2011Q4

REPORT INFORMATION
  Report Type: 
  Country: None (occurrence: None)
  Receive Date: 20111122
  Receipt Date: 20111121
  Transmission Date: 20120403
  Serious: No
  Sender: FDA-Public Use
  Company Number: US-PFIZER INC-2011284471

PATIENT
  Sex: Female
  Weight: 82.1 kg

DRUGS (3)
  1. TOPROL-XL [Concomitant]
     Indication: HYPERTENSION
     Dosage: UNK
  2. ZOCOR [Concomitant]
     Indication: BLOOD CHOLESTEROL INCREASED
     Dosage: UNK
  3. IBUPROFEN (ADVIL) [Suspect]
     Indication: PAIN
     Dosage: UNK
     Route: 048
     Dates: start: 20111101, end: 20111119

REACTIONS (1)
  - ABDOMINAL PAIN UPPER [None]
